FAERS Safety Report 26100355 (Version 2)
Quarter: 2025Q4

REPORT INFORMATION
  Report Type: Spontaneous
  Country: US (occurrence: US)
  Receive Date: 20251128
  Receipt Date: 20251210
  Transmission Date: 20260117
  Serious: No
  Sender: SANDOZ
  Company Number: US-SANDOZ-SDZ2025US089817

PATIENT
  Age: 59 Year
  Sex: Female
  Weight: 26.3 kg

DRUGS (2)
  1. COMBIPATCH [Suspect]
     Active Substance: ESTRADIOL\NORETHINDRONE ACETATE
     Indication: Hot flush
     Dosage: 0.05/0.14 MG, EVERY  TUESDAY AND FRIDAY
     Route: 062
     Dates: start: 202510
  2. COMBIPATCH [Suspect]
     Active Substance: ESTRADIOL\NORETHINDRONE ACETATE
     Indication: Vulvovaginal dryness

REACTIONS (3)
  - Vaginal discharge [Not Recovered/Not Resolved]
  - Palpitations [Recovered/Resolved]
  - Product adhesion issue [Not Recovered/Not Resolved]

NARRATIVE: CASE EVENT DATE: 20251001
